FAERS Safety Report 4556037-5 (Version None)
Quarter: 2005Q1

REPORT INFORMATION
  Report Type: 
  Country: None (occurrence: None)
  Receive Date: 20050118
  Receipt Date: 20041013
  Transmission Date: 20050727
  Serious: No
  Sender: FDA-Public Use
  Company Number: A001-002-006253

PATIENT
  Age: 84 Year
  Sex: Female
  Weight: 57 kg

DRUGS (5)
  1. ARICEPT [Suspect]
     Dosage: 5 MG , 1 IN 1 D, ORAL
     Route: 048
     Dates: start: 20041001
  2. DILANTIN [Concomitant]
  3. RESTORIL [Concomitant]
  4. VITAMIN B COMPLEX (B-KOMPLEX  ^LECIVA^) [Concomitant]
  5. FOLIC ACID [Concomitant]

REACTIONS (4)
  - CONVULSION [None]
  - ENURESIS [None]
  - INSOMNIA [None]
  - NIGHTMARE [None]
